FAERS Safety Report 5913881-7 (Version None)
Quarter: 2008Q4

REPORT INFORMATION
  Report Type: 
  Country: None (occurrence: None)
  Receive Date: 20081009
  Receipt Date: 20081003
  Transmission Date: 20090506
  Serious: Yes (Life-Threatening, Hospitalization)
  Sender: FDA-Public Use
  Company Number: B0534893B

PATIENT
  Sex: Female
  Weight: 0.9 kg

DRUGS (6)
  1. PAXIL [Suspect]
     Indication: PERSONALITY DISORDER
     Dosage: 10MG PER DAY
     Dates: start: 20080820
  2. MYSLEE [Concomitant]
     Dosage: 10MG PER DAY
     Dates: start: 20080831
  3. DIAZEPAM [Concomitant]
     Dates: start: 20080828, end: 20080829
  4. RITODRINE HYDROCHLORIDE [Concomitant]
     Dates: start: 20080828
  5. BETAMETHASONE [Concomitant]
     Dates: start: 20080829, end: 20080830
  6. ZYPREXA [Concomitant]
     Dates: start: 20080830, end: 20080831

REACTIONS (12)
  - APNOEA [None]
  - DRUG EXPOSURE DURING PREGNANCY [None]
  - FOETAL GROWTH RETARDATION [None]
  - FOETAL HYPOKINESIA [None]
  - NEONATAL ASPHYXIA [None]
  - NEONATAL RESPIRATORY DISTRESS SYNDROME [None]
  - PATENT DUCTUS ARTERIOSUS [None]
  - PLACENTAL INSUFFICIENCY [None]
  - PREMATURE BABY [None]
  - RESPIRATORY DEPRESSION [None]
  - SMALL FOR DATES BABY [None]
  - SOMNOLENCE NEONATAL [None]
